FAERS Safety Report 8998417 (Version 1)
Quarter: 2013Q1

REPORT INFORMATION
  Report Type: Spontaneous
  Country: US (occurrence: US)
  Receive Date: 20130103
  Receipt Date: 20130103
  Transmission Date: 20140127
  Serious: No
  Sender: FDA-Public Use
  Company Number: US-BAYER-2013-000521

PATIENT
  Age: 59 Year
  Sex: Male
  Weight: 111 kg

DRUGS (2)
  1. ALEVE CAPLET/TABLET,MIDOL EXTENDED RELIEF CAPLET [Suspect]
     Indication: ANALGESIC THERAPY
     Dosage: 1 DF, BID
     Route: 048
     Dates: start: 201212
  2. IRON SUPPLEMENT [Concomitant]

REACTIONS (2)
  - Faeces discoloured [Not Recovered/Not Resolved]
  - Incorrect drug administration duration [None]
